FAERS Safety Report 9525634 (Version 1)
Quarter: 2013Q1

REPORT INFORMATION
  Report Type: Spontaneous
  Country: US (occurrence: None)
  Receive Date: 20130314
  Receipt Date: 20130314
  Transmission Date: 20140127
  Serious: Yes (Hospitalization)
  Sender: FDA-Public Use
  Company Number: 1301USA007371

PATIENT
  Age: 58 Year
  Sex: Male

DRUGS (1)
  1. VICTRELIS (BOCEPREVIR) CAPSULE, 800MG [Suspect]
     Indication: HEPATITIS C
     Route: 048
     Dates: start: 201207, end: 201211

REACTIONS (2)
  - Rash generalised [None]
  - Red blood cell count decreased [None]
